FAERS Safety Report 20004895 (Version 1)
Quarter: 2021Q4

REPORT INFORMATION
  Report Type: Spontaneous
  Country: US (occurrence: US)
  Receive Date: 20211027
  Receipt Date: 20211027
  Transmission Date: 20220303
  Serious: Yes (Hospitalization)
  Sender: FDA-Public Use
  Company Number: None

PATIENT
  Age: 72 Year
  Sex: Male

DRUGS (11)
  1. ESBRIET [Suspect]
     Active Substance: PIRFENIDONE
     Indication: Idiopathic pulmonary fibrosis
     Route: 048
  2. ADVIL TAB [Concomitant]
  3. ATORVASTATIN [Concomitant]
     Active Substance: ATORVASTATIN
  4. LISINOPRIL [Concomitant]
     Active Substance: LISINOPRIL
  5. METOPROL TAR TAB [Concomitant]
  6. NAPROXEN TAB [Concomitant]
  7. POTASSIUM GL TAB [Concomitant]
  8. VITAMIN B-12 TAB [Concomitant]
  9. VITAMIN C TAB [Concomitant]
  10. VITAMON D3 CAP [Concomitant]
  11. ZINC TAB [Concomitant]

REACTIONS (2)
  - Shoulder arthroplasty [None]
  - Diarrhoea [None]

NARRATIVE: CASE EVENT DATE: 20210927
